FAERS Safety Report 25943733 (Version 1)
Quarter: 2025Q4

REPORT INFORMATION
  Report Type: Spontaneous
  Country: JP (occurrence: JP)
  Receive Date: 20251021
  Receipt Date: 20251021
  Transmission Date: 20260118
  Serious: Yes (Other)
  Sender: MERCK SHARP & DOHME LLC
  Company Number: JP-009507513-2341174

PATIENT
  Age: 7 Decade
  Sex: Male

DRUGS (4)
  1. PEMBROLIZUMAB [Suspect]
     Active Substance: PEMBROLIZUMAB
     Indication: Clear cell renal cell carcinoma
  2. LENVATINIB [Suspect]
     Active Substance: LENVATINIB
     Indication: Clear cell renal cell carcinoma
     Dosage: STARTED ON 08-MAY-20XX,
     Route: 048
  3. LENVATINIB [Suspect]
     Active Substance: LENVATINIB
     Indication: Clear cell renal cell carcinoma
     Dosage: 02-JUN OF YEAR 20XX+1, RESTARTED AT 14 MG
     Route: 048
  4. LENVATINIB [Suspect]
     Active Substance: LENVATINIB
     Indication: Clear cell renal cell carcinoma
     Dosage: 22-MAR OF YEAR 20XX+3, RESTARTED AT 10 MG
     Route: 048

REACTIONS (8)
  - Immune-mediated hepatic disorder [Recovering/Resolving]
  - Proteinuria [Unknown]
  - Therapy partial responder [Unknown]
  - Diarrhoea [Unknown]
  - Hypertension [Recovered/Resolved]
  - Taste disorder [Unknown]
  - Pruritus [Unknown]
  - Malaise [Unknown]
